FAERS Safety Report 24020614 (Version 2)
Quarter: 2024Q3

REPORT INFORMATION
  Report Type: Report from Study
  Country: US (occurrence: US)
  Receive Date: 20240627
  Receipt Date: 20240814
  Transmission Date: 20241017
  Serious: Yes (Other)
  Sender: MYLAN
  Company Number: US-MYLANLABS-2024M1058411

PATIENT
  Age: 31 Year
  Sex: Female

DRUGS (1)
  1. CLOZAPINE [Suspect]
     Active Substance: CLOZAPINE
     Indication: Product used for unknown indication
     Dosage: 300 MILLIGRAM, QD (DAILY BY MOUTH)
     Route: 048

REACTIONS (10)
  - Neutropenia [Recovered/Resolved]
  - White blood cell count decreased [Recovered/Resolved]
  - Red blood cell count decreased [Recovering/Resolving]
  - Mean cell volume increased [Recovering/Resolving]
  - Mean cell haemoglobin increased [Recovering/Resolving]
  - Red cell distribution width increased [Recovered/Resolved]
  - Mean platelet volume decreased [Recovered/Resolved]
  - Neutrophil count decreased [Recovered/Resolved]
  - Basophil count decreased [Not Recovered/Not Resolved]
  - Monocyte count increased [Unknown]

NARRATIVE: CASE EVENT DATE: 20240624
